FAERS Safety Report 14513483 (Version 2)
Quarter: 2019Q1

REPORT INFORMATION
  Report Type: Spontaneous
  Country: US (occurrence: US)
  Receive Date: 20180209
  Receipt Date: 20190115
  Transmission Date: 20190417
  Serious: No
  Sender: FDA-Public Use
  Company Number: US-ALLERGAN-1702945US

PATIENT
  Age: 53 Year
  Sex: Female

DRUGS (4)
  1. REFRESH [Concomitant]
     Active Substance: UNSPECIFIED INGREDIENT
     Indication: DRY EYE
     Dosage: UNK
     Route: 047
  2. RESTASIS [Suspect]
     Active Substance: CYCLOSPORINE
     Indication: DRY EYE
     Dosage: UNK UNK, BID
     Route: 047
  3. QUINACRINE [Concomitant]
     Active Substance: QUINACRINE
     Indication: SJOGREN^S SYNDROME
     Dosage: UNK
     Route: 048
  4. PLAQUENIL [Concomitant]
     Active Substance: HYDROXYCHLOROQUINE SULFATE
     Indication: SJOGREN^S SYNDROME
     Route: 048

REACTIONS (4)
  - Multiple use of single-use product [Unknown]
  - Incorrect dose administered [Unknown]
  - Application site paraesthesia [Unknown]
  - Pain [Unknown]
